FAERS Safety Report 4917396-4 (Version None)
Quarter: 2006Q1

REPORT INFORMATION
  Report Type: 
  Country: None (occurrence: None)
  Receive Date: 20060221
  Receipt Date: 20060216
  Transmission Date: 20060701
  Serious: Yes (Life-Threatening)
  Sender: FDA-Public Use
  Company Number: FR-GLAXOSMITHKLINE-B0412244A

PATIENT
  Age: 69 Year
  Sex: Female
  Weight: 65 kg

DRUGS (6)
  1. MIVACRON [Suspect]
     Indication: INDUCTION OF ANAESTHESIA
     Dosage: 2MGML UNKNOWN
     Route: 042
     Dates: start: 20060106, end: 20060106
  2. CEFAZOLIN [Suspect]
     Indication: INDUCTION OF ANAESTHESIA
     Dosage: 2G PER DAY
     Route: 042
     Dates: start: 20060106, end: 20060106
  3. DIPRIVAN [Suspect]
     Indication: INDUCTION OF ANAESTHESIA
     Dosage: 20MGML UNKNOWN
     Route: 042
     Dates: start: 20060106, end: 20060106
  4. SOLU-MEDROL [Suspect]
     Indication: INDUCTION OF ANAESTHESIA
     Dosage: 120MG PER DAY
     Route: 042
     Dates: start: 20060106, end: 20060106
  5. SUFENTA [Suspect]
     Indication: INDUCTION OF ANAESTHESIA
     Route: 042
     Dates: start: 20060106, end: 20060106
  6. HYPNOVEL [Suspect]
     Indication: INDUCTION OF ANAESTHESIA
     Dosage: 5MG PER DAY
     Route: 042
     Dates: start: 20060106, end: 20060106

REACTIONS (4)
  - ANAPHYLACTIC SHOCK [None]
  - BLOOD PRESSURE SYSTOLIC DECREASED [None]
  - BRONCHOSPASM [None]
  - HEART RATE INCREASED [None]
